FAERS Safety Report 22610410 (Version 2)
Quarter: 2023Q2

REPORT INFORMATION
  Report Type: Spontaneous
  Country: JP (occurrence: JP)
  Receive Date: 20230616
  Receipt Date: 20230616
  Transmission Date: 20230721
  Serious: Yes (Hospitalization)
  Sender: FDA-Public Use
  Company Number: JP-JNJFOC-20181101401

PATIENT
  Age: 61 Year
  Sex: Male
  Weight: 73 kg

DRUGS (4)
  1. CANAGLIFLOZIN [Suspect]
     Active Substance: CANAGLIFLOZIN
     Indication: Type 2 diabetes mellitus
     Route: 048
     Dates: start: 20160930
  2. BROTIZOLAM [Concomitant]
     Active Substance: BROTIZOLAM
     Route: 048
     Dates: start: 20160929, end: 20180416
  3. REPAGLINIDE [Concomitant]
     Active Substance: REPAGLINIDE
     Indication: Type 2 diabetes mellitus
     Route: 048
     Dates: start: 20160623
  4. LYRICA [Concomitant]
     Active Substance: PREGABALIN
     Dosage: START:  BEFORE ADMINISTRATION OF CANAGLIFLOZIN
     Route: 048

REACTIONS (1)
  - Renal cancer [Recovering/Resolving]

NARRATIVE: CASE EVENT DATE: 20180420
